FAERS Safety Report 7930715-X (Version None)
Quarter: 2011Q4

REPORT INFORMATION
  Report Type: 
  Country: None (occurrence: None)
  Receive Date: 20111117
  Receipt Date: 20111102
  Transmission Date: 20120403
  Serious: Yes (Hospitalization, Disabling)
  Sender: FDA-Public Use
  Company Number: 2011MA015996

PATIENT
  Age: 22 Year
  Sex: Female

DRUGS (4)
  1. CARBIMAZOLE [Concomitant]
  2. PROPYLTHIOURACIL TAB [Suspect]
     Indication: BASEDOW'S DISEASE
     Dosage: 400 MG;TDS
  3. POTASSIUM IODIDE [Concomitant]
  4. PREDNISOLONE [Concomitant]

REACTIONS (1)
  - HYPERTHYROIDISM [None]
